FAERS Safety Report 22205374 (Version 1)
Quarter: 2023Q2

REPORT INFORMATION
  Report Type: Spontaneous
  Country: CH (occurrence: CH)
  Receive Date: 20230413
  Receipt Date: 20230413
  Transmission Date: 20230722
  Serious: Yes (Death, Other)
  Sender: FDA-Public Use
  Company Number: CH-INCYTE CORPORATION-2023IN003518

PATIENT

DRUGS (2)
  1. TAFASITAMAB [Suspect]
     Active Substance: TAFASITAMAB
     Indication: Product used for unknown indication
     Dosage: 840 MILLIGRAM, ONCE A WEEK AND 1 ADDITIONAL DOSE AT DAY 14
     Route: 065
     Dates: start: 20220411
  2. REVLIMID [Suspect]
     Active Substance: LENALIDOMIDE
     Indication: Product used for unknown indication
     Dosage: 200 MILLIGRAM, 1 CAPSULE DAILY
     Route: 065

REACTIONS (1)
  - Death [Fatal]
